FAERS Safety Report 12142334 (Version 1)
Quarter: 2016Q1

REPORT INFORMATION
  Report Type: Spontaneous
  Country: US (occurrence: US)
  Receive Date: 20160303
  Receipt Date: 20160303
  Transmission Date: 20160526
  Serious: No
  Sender: FDA-Public Use
  Company Number: US-ABBVIE-15P-163-1378134-00

PATIENT
  Age: 9 Year
  Sex: Female
  Weight: 65.1 kg

DRUGS (3)
  1. ZYRTEC [Concomitant]
     Active Substance: CETIRIZINE HYDROCHLORIDE
     Indication: SEASONAL ALLERGY
     Route: 065
  2. LUPRON DEPOT-PED [Suspect]
     Active Substance: LEUPROLIDE ACETATE
     Indication: PRECOCIOUS PUBERTY
     Route: 030
     Dates: start: 201306, end: 20140530
  3. LUPRON DEPOT-PED [Suspect]
     Active Substance: LEUPROLIDE ACETATE
     Route: 030
     Dates: start: 20140530

REACTIONS (4)
  - Drug ineffective [Not Recovered/Not Resolved]
  - Body height increased [Not Recovered/Not Resolved]
  - Weight increased [Not Recovered/Not Resolved]
  - Bone development abnormal [Not Recovered/Not Resolved]

NARRATIVE: CASE EVENT DATE: 20140529
